FAERS Safety Report 21045368 (Version 1)
Quarter: 2022Q3

REPORT INFORMATION
  Report Type: Spontaneous
  Country: NL (occurrence: NL)
  Receive Date: 20220706
  Receipt Date: 20220706
  Transmission Date: 20221027
  Serious: Yes (Other)
  Sender: FDA-Public Use
  Company Number: NL-CELLTRION INC.-2022NL010367

PATIENT

DRUGS (1)
  1. INFLIXIMAB [Suspect]
     Active Substance: INFLIXIMAB
     Indication: Pyoderma gangrenosum
     Dosage: UNKNOWN

REACTIONS (4)
  - Pyoderma gangrenosum [Recovered/Resolved]
  - Scar [Recovering/Resolving]
  - Stress [Unknown]
  - Off label use [Unknown]
